FAERS Safety Report 12608861 (Version 1)
Quarter: 2016Q3

REPORT INFORMATION
  Report Type: Other
  Country: IN (occurrence: IN)
  Receive Date: 20160730
  Receipt Date: 20160730
  Transmission Date: 20161109
  Serious: No
  Sender: FDA-Public Use
  Company Number: IN-HETERO LABS LTD-1055716

PATIENT
  Age: 35 Year
  Sex: Male

DRUGS (8)
  1. ONDANSETRAN [Concomitant]
     Active Substance: ONDANSETRON HYDROCHLORIDE
  2. PENTAZOCINE AND NALOXONE [Concomitant]
     Active Substance: NALOXONE HYDROCHLORIDE\PENTAZOCINE HYDROCHLORIDE
  3. LITHIUM. [Suspect]
     Active Substance: LITHIUM
     Indication: BIPOLAR DISORDER
  4. GLYCOPYRROLATE. [Concomitant]
     Active Substance: GLYCOPYRROLATE
  5. DEXTROSE. [Concomitant]
     Active Substance: DEXTROSE
  6. SUCCINYLCHOLINE CHLORIDE. [Suspect]
     Active Substance: SUCCINYLCHOLINE CHLORIDE
  7. PROPOFOL. [Concomitant]
     Active Substance: PROPOFOL
  8. OLANZAPINE. [Concomitant]
     Active Substance: OLANZAPINE

REACTIONS (2)
  - Apnoea [Recovered/Resolved]
  - Drug interaction [Recovered/Resolved]
